FAERS Safety Report 20858027 (Version 1)
Quarter: 2022Q2

REPORT INFORMATION
  Report Type: Spontaneous
  Country: US (occurrence: US)
  Receive Date: 20220521
  Receipt Date: 20220521
  Transmission Date: 20220721
  Serious: No
  Sender: FDA-Public Use
  Company Number: US-BRISTOL-MYERS SQUIBB COMPANY-2022-031017

PATIENT
  Age: 77 Year
  Sex: Male
  Weight: 63.05 kg

DRUGS (1)
  1. REVLIMID [Suspect]
     Active Substance: LENALIDOMIDE
     Indication: Plasma cell myeloma
     Dosage: ALTERNATING WITH 7 DAYS ON, 7 DAYS OFF
     Route: 048
     Dates: start: 20180502

REACTIONS (1)
  - Blood calcium decreased [Recovered/Resolved]
